FAERS Safety Report 24167553 (Version 1)
Quarter: 2024Q3

REPORT INFORMATION
  Report Type: Spontaneous
  Country: US (occurrence: US)
  Receive Date: 20240802
  Receipt Date: 20240802
  Transmission Date: 20241016
  Serious: No
  Sender: BAYER
  Company Number: US-BAYER-2024A111205

PATIENT

DRUGS (6)
  1. CLARITIN [Suspect]
     Active Substance: LORATADINE
  2. XOLAIR [Concomitant]
     Active Substance: OMALIZUMAB
  3. ZYRTEC [Concomitant]
     Active Substance: CETIRIZINE HYDROCHLORIDE
  4. PEPCID [Concomitant]
     Active Substance: FAMOTIDINE
  5. SINGULAIR [Concomitant]
     Active Substance: MONTELUKAST SODIUM
  6. BENADRYL [Concomitant]
     Active Substance: DIPHENHYDRAMINE HYDROCHLORIDE

REACTIONS (1)
  - Urticaria [Unknown]
